FAERS Safety Report 21433847 (Version 2)
Quarter: 2025Q3

REPORT INFORMATION
  Report Type: Spontaneous
  Country: EU (occurrence: EU)
  Receive Date: 20221010
  Receipt Date: 20250718
  Transmission Date: 20251021
  Serious: Yes (Other)
  Sender: ORGANON
  Company Number: EU-ORGANON-O2210FRA000049

PATIENT
  Age: 59 Year
  Sex: Male

DRUGS (3)
  1. MIRTAZAPINE [Suspect]
     Active Substance: MIRTAZAPINE
     Dosage: 2 TABLETS PER DAY
     Route: 048
  2. TERALITHE [Concomitant]
     Active Substance: LITHIUM CARBONATE
     Dosage: 2 TABLETS PER DAY (FOR 10 YEARS)
     Route: 048
     Dates: start: 2012
  3. MIANSERIN HYDROCHLORIDE [Concomitant]
     Active Substance: MIANSERIN HYDROCHLORIDE
     Route: 048

REACTIONS (2)
  - Tooth loss [Unknown]
  - Dental caries [Unknown]
